FAERS Safety Report 7941702-X (Version None)
Quarter: 2011Q4

REPORT INFORMATION
  Report Type: 
  Country: None (occurrence: None)
  Receive Date: 20111128
  Receipt Date: 20111128
  Transmission Date: 20120403
  Serious: Yes (Disabling)
  Sender: FDA-Public Use
  Company Number: None

PATIENT
  Age: 30 Year
  Sex: Male
  Weight: 83.914 kg

DRUGS (1)
  1. ZOLPIDEM [Suspect]
     Indication: SURGERY
     Dosage: 1
     Route: 048
     Dates: start: 20111110, end: 20111125

REACTIONS (5)
  - FALL [None]
  - PAIN [None]
  - ABNORMAL BEHAVIOUR [None]
  - SOMNAMBULISM [None]
  - HEADACHE [None]
